FAERS Safety Report 17649292 (Version 4)
Quarter: 2022Q4

REPORT INFORMATION
  Report Type: Spontaneous
  Country: US (occurrence: US)
  Receive Date: 20200409
  Receipt Date: 20221116
  Transmission Date: 20230112
  Serious: Yes (Death, Other)
  Sender: FDA-Public Use
  Company Number: US-SA-2020SA088064

PATIENT
  Age: 58 Year
  Sex: Male

DRUGS (6)
  1. DUPIXENT [Suspect]
     Active Substance: DUPILUMAB
     Indication: Cutaneous T-cell lymphoma stage II
     Dosage: 600 MG LOADING DOSE
     Route: 058
  2. DUPIXENT [Suspect]
     Active Substance: DUPILUMAB
     Dosage: 300 MG, QOW
     Route: 058
  3. BEXAROTENE [Concomitant]
     Active Substance: BEXAROTENE
     Indication: Cutaneous T-cell lymphoma stage II
     Route: 048
  4. MECHLORETHAMINE [Concomitant]
     Active Substance: MECHLORETHAMINE
     Indication: Cutaneous T-cell lymphoma stage II
     Route: 061
  5. TACROLIMUS [Concomitant]
     Active Substance: TACROLIMUS
     Indication: Cutaneous T-cell lymphoma stage II
     Dosage: UNK
     Route: 061
  6. HUMAN IMMUNOGLOBULIN G [Concomitant]
     Active Substance: HUMAN IMMUNOGLOBULIN G
     Indication: Cutaneous T-cell lymphoma stage II
     Dosage: UNK
     Route: 042

REACTIONS (7)
  - Cutaneous T-cell lymphoma stage IV [Fatal]
  - Disease progression [Fatal]
  - Off label use [Fatal]
  - Skin plaque [Fatal]
  - Lymphadenopathy [Fatal]
  - Pruritus [Fatal]
  - Fatigue [Fatal]
